FAERS Safety Report 16962788 (Version 4)
Quarter: 2020Q1

REPORT INFORMATION
  Report Type: Spontaneous
  Country: US (occurrence: US)
  Receive Date: 20191025
  Receipt Date: 20200227
  Transmission Date: 20200409
  Serious: Yes (Hospitalization)
  Sender: FDA-Public Use
  Company Number: US-ACTELION-A-NJ2019-196926

PATIENT
  Age: 2 Year
  Sex: Female
  Weight: 13.61 kg

DRUGS (7)
  1. REMODULIN [Suspect]
     Active Substance: TREPROSTINIL
     Indication: PRODUCT USED FOR UNKNOWN INDICATION
     Dosage: 20 NG/KG, PER MIN
     Route: 065
     Dates: start: 20190921
  2. SILDENAFIL. [Concomitant]
     Active Substance: SILDENAFIL
     Dosage: 10 MG
  3. TRACLEER [Suspect]
     Active Substance: BOSENTAN
     Indication: PULMONARY HYPERTENSION
     Dosage: 16 MG, Q12HRS, VIA GASTROSTOMY TUBE
     Route: 048
  4. OMEPRAZOLE. [Concomitant]
     Active Substance: OMEPRAZOLE
     Dosage: 250 UNK
  5. LASIX [Concomitant]
     Active Substance: FUROSEMIDE
     Dosage: 20 MG
  6. DIURIL [Concomitant]
     Active Substance: CHLOROTHIAZIDE
     Dosage: 250 MG
  7. DIGOXIN. [Concomitant]
     Active Substance: DIGOXIN
     Dosage: UNK MG

REACTIONS (9)
  - Gastroenteritis viral [Recovered/Resolved]
  - Catheter site pain [Unknown]
  - Catheter site erythema [Unknown]
  - Diarrhoea [Recovered/Resolved]
  - Catheter site swelling [Unknown]
  - Rhinovirus infection [Unknown]
  - Rhinorrhoea [Unknown]
  - Pyrexia [Recovered/Resolved]
  - Catheterisation cardiac [Unknown]

NARRATIVE: CASE EVENT DATE: 20191006
